FAERS Safety Report 9468486 (Version 1)
Quarter: 2013Q3

REPORT INFORMATION
  Report Type: Spontaneous
  Country: GB (occurrence: GB)
  Receive Date: 20130821
  Receipt Date: 20130821
  Transmission Date: 20140515
  Serious: Yes (Other)
  Sender: FDA-Public Use
  Company Number: GB-TEVA-425767ISR

PATIENT
  Age: 23 Year
  Sex: Female

DRUGS (11)
  1. PREDNISOLONE [Suspect]
     Indication: ASTHMA
     Dosage: 10-40MG
     Route: 048
     Dates: start: 20111219, end: 20120525
  2. SYMBICORT [Concomitant]
  3. DESLORATADINE [Concomitant]
  4. AZITHROMYCIN [Concomitant]
  5. UNIPHYLLIN [Concomitant]
  6. OMEPRAZOLE [Concomitant]
  7. CALCICHEW D3 [Concomitant]
  8. VENTOLIN [Concomitant]
  9. MONTELUKAST [Concomitant]
  10. BUDESONIDE [Concomitant]
  11. AMOXICILLIN [Concomitant]

REACTIONS (4)
  - Epistaxis [Recovered/Resolved]
  - Weight increased [Recovering/Resolving]
  - Cushingoid [Recovering/Resolving]
  - Diabetes mellitus [Recovered/Resolved]
